FAERS Safety Report 15234348 (Version 1)
Quarter: 2018Q3

REPORT INFORMATION
  Report Type: Spontaneous
  Country: DE (occurrence: DE)
  Receive Date: 20180803
  Receipt Date: 20180803
  Transmission Date: 20181010
  Serious: Yes (Hospitalization)
  Sender: FDA-Public Use
  Company Number: DE-BIOGEN-2018BI00515075

PATIENT
  Age: 1 Year
  Sex: Female

DRUGS (1)
  1. TECFIDERA [Suspect]
     Active Substance: DIMETHYL FUMARATE
     Indication: ACCIDENTAL EXPOSURE TO PRODUCT
     Dosage: ONCE
     Route: 048

REACTIONS (1)
  - Accidental exposure to product packaging by child [Recovered/Resolved]

NARRATIVE: CASE EVENT DATE: 20180121
